FAERS Safety Report 4314742-X (Version None)
Quarter: 2004Q1

REPORT INFORMATION
  Report Type: 
  Country: None (occurrence: None)
  Receive Date: 20040308
  Receipt Date: 20040219
  Transmission Date: 20041129
  Serious: Yes (Death)
  Sender: FDA-Public Use
  Company Number: 2004-DE-00808GD

PATIENT
  Age: 13 Year
  Sex: Female

DRUGS (2)
  1. CYCLOPHOSPHAMIDE [Suspect]
     Indication: BEHCET'S SYNDROME
  2. THALIDOMIDE (THALIDOMIDE) [Suspect]
     Indication: BEHCET'S SYNDROME

REACTIONS (15)
  - ASPIRATION TRACHEAL ABNORMAL [None]
  - CLOSTRIDIUM COLITIS [None]
  - HAEMOPTYSIS [None]
  - HYPOVOLAEMIC SHOCK [None]
  - HYPOXIA [None]
  - LACUNAR INFARCTION [None]
  - OBLITERATIVE BRONCHIOLITIS [None]
  - PNEUMONIA BACTERIAL [None]
  - PULMONARY ARTERY ANEURYSM [None]
  - PULMONARY EMBOLISM [None]
  - RESPIRATORY ACIDOSIS [None]
  - RESPIRATORY DISTRESS [None]
  - SEPTIC SHOCK [None]
  - TRACHEAL HAEMORRHAGE [None]
  - VASCULITIS CEREBRAL [None]
